FAERS Safety Report 8512412 (Version 2)
Quarter: 2014Q2

REPORT INFORMATION
  Report Type: Spontaneous
  Country: US (occurrence: US)
  Receive Date: 20120413
  Receipt Date: 20140521
  Transmission Date: 20141212
  Serious: Yes (Other)
  Sender: FDA-Public Use
  Company Number: US-ASTRAZENECA-2011SE41807

PATIENT
  Age: 63 Year
  Sex: Female

DRUGS (8)
  1. NEXIUM [Suspect]
     Indication: GASTROOESOPHAGEAL REFLUX DISEASE
     Route: 048
     Dates: start: 2010, end: 20140512
  2. NEXIUM [Suspect]
     Indication: DYSPHAGIA
     Route: 048
     Dates: start: 2010, end: 20140512
  3. NEXIUM [Suspect]
     Indication: CHOKING
     Route: 048
     Dates: start: 2010, end: 20140512
  4. OMEPRAZOLE OTC [Suspect]
     Indication: GASTROOESOPHAGEAL REFLUX DISEASE
     Route: 048
  5. OMEPRAZOLE OTC [Suspect]
     Indication: DYSPHAGIA
     Route: 048
  6. OMEPRAZOLE OTC [Suspect]
     Indication: CHOKING
     Route: 048
  7. BENACOL [Concomitant]
     Indication: HYPERTENSION
     Dosage: 20 MG EVERY MORNING, 4 OR 5 YEARS
     Route: 048
  8. NEURONTIN [Concomitant]
     Indication: NEURALGIA
     Dosage: 4 OR 5 YEARS
     Route: 048

REACTIONS (10)
  - Haemorrhage [Unknown]
  - Choking [Unknown]
  - Dysphagia [Unknown]
  - Feeling abnormal [Unknown]
  - Hypertension [Unknown]
  - Fear of eating [Unknown]
  - Malaise [Unknown]
  - Drug dose omission [Unknown]
  - Off label use [Unknown]
  - Drug ineffective [Unknown]
